FAERS Safety Report 6538223-8 (Version None)
Quarter: 2010Q1

REPORT INFORMATION
  Report Type: 
  Country: None (occurrence: None)
  Receive Date: 20100114
  Receipt Date: 20100104
  Transmission Date: 20100710
  Serious: Yes (Hospitalization)
  Sender: FDA-Public Use
  Company Number: FR-ABBOTT-10P-056-0617469-00

PATIENT
  Age: 59 Year
  Sex: Female

DRUGS (8)
  1. DEPAKENE [Suspect]
     Indication: EPILEPSY
     Route: 048
     Dates: end: 20090925
  2. DEPAKENE [Suspect]
     Route: 048
     Dates: start: 20090926, end: 20090928
  3. DEPAKENE [Suspect]
     Route: 042
     Dates: start: 20090928, end: 20091001
  4. DEPAKENE [Suspect]
     Route: 042
     Dates: start: 20091002, end: 20091005
  5. DEPAKENE [Suspect]
     Route: 048
     Dates: start: 20091006
  6. INVANZ [Suspect]
     Indication: URINARY TRACT INFECTION
     Dosage: ONE GRAM DAILY
     Route: 042
     Dates: start: 20090923, end: 20090926
  7. TIENAM [Suspect]
     Indication: URINARY TRACT INFECTION
     Route: 042
     Dates: start: 20090916, end: 20090923
  8. KEPRA [Concomitant]
     Indication: DRUG USE FOR UNKNOWN INDICATION

REACTIONS (3)
  - ANTICONVULSANT DRUG LEVEL ABNORMAL [None]
  - GRAND MAL CONVULSION [None]
  - UNDERDOSE [None]
